FAERS Safety Report 6221002-9 (Version None)
Quarter: 2009Q2

REPORT INFORMATION
  Report Type: 
  Country: None (occurrence: None)
  Receive Date: 20090608
  Receipt Date: 20090521
  Transmission Date: 20091009
  Serious: Yes (Hospitalization, Congenital Anomaly)
  Sender: FDA-Public Use
  Company Number: 8045957

PATIENT
  Sex: Male
  Weight: 55 kg

DRUGS (4)
  1. KEPPRA [Suspect]
     Dosage: 2700 MG 2/D
  2. KEPPRA [Suspect]
     Dosage: 2.75 G 2/D
  3. KEPPRA [Suspect]
     Dosage: 2 G 2/D
  4. KEPPRA [Suspect]

REACTIONS (15)
  - ABDOMINAL DISCOMFORT [None]
  - ABNORMAL BEHAVIOUR [None]
  - ACCIDENTAL OVERDOSE [None]
  - AMNESIA [None]
  - DRUG EFFECT DECREASED [None]
  - DRUG TOXICITY [None]
  - FATIGUE [None]
  - HEAD TITUBATION [None]
  - MOOD SWINGS [None]
  - NAUSEA [None]
  - SCREAMING [None]
  - SELF INJURIOUS BEHAVIOUR [None]
  - SOMNOLENCE [None]
  - UNRESPONSIVE TO STIMULI [None]
  - WEIGHT DECREASED [None]
